FAERS Safety Report 8313975-5 (Version None)
Quarter: 2012Q2

REPORT INFORMATION
  Report Type: 
  Country: None (occurrence: None)
  Receive Date: 20120426
  Receipt Date: 20120424
  Transmission Date: 20120825
  Serious: Yes (Hospitalization)
  Sender: FDA-Public Use
  Company Number: US-PFIZER INC-2012087007

PATIENT

DRUGS (1)
  1. NEURONTIN [Suspect]
     Dosage: UNK
     Dates: start: 20120312

REACTIONS (1)
  - ALCOHOL POISONING [None]
